FAERS Safety Report 4474486-0 (Version None)
Quarter: 2004Q4

REPORT INFORMATION
  Report Type: 
  Country: None (occurrence: None)
  Receive Date: 20041014
  Receipt Date: 20041005
  Transmission Date: 20050328
  Serious: Yes (Life-Threatening, Hospitalization)
  Sender: FDA-Public Use
  Company Number: FR-GLAXOSMITHKLINE-B0347141A

PATIENT
  Age: 2 Year
  Sex: Female
  Weight: 9.3 kg

DRUGS (4)
  1. AUGMENTIN '125' [Suspect]
     Route: 065
     Dates: start: 20040704, end: 20040706
  2. ADVIL [Suspect]
     Route: 048
     Dates: start: 20040630
  3. DOLIPRANE [Suspect]
     Dates: start: 20040704
  4. OXYGEN [Concomitant]

REACTIONS (4)
  - CHEST X-RAY ABNORMAL [None]
  - DRUG INEFFECTIVE [None]
  - OXYGEN SATURATION DECREASED [None]
  - PNEUMONIA [None]
